FAERS Safety Report 6182394-2 (Version None)
Quarter: 2009Q2

REPORT INFORMATION
  Report Type: 
  Country: None (occurrence: None)
  Receive Date: 20090505
  Receipt Date: 20090505
  Transmission Date: 20091009
  Serious: Yes (Death)
  Sender: FDA-Public Use
  Company Number: None

PATIENT
  Sex: Male

DRUGS (11)
  1. REVLIMID [Suspect]
     Indication: MULTIPLE MYELOMA
     Dosage: 20MG DAILY ORAL
     Route: 048
     Dates: start: 20080701, end: 20081201
  2. ALBUTEROL/ATROVENT [Concomitant]
  3. LOVASTATIN [Concomitant]
  4. GABAPENTIN [Concomitant]
  5. POTASSIUM CHLORIDE [Concomitant]
  6. NEULASTA [Concomitant]
  7. BRIMONIDINE TARTRATE [Concomitant]
  8. INSULIN [Concomitant]
  9. HYDROCHLOROTHIAZIDE [Concomitant]
  10. TERAZOSIN HCL [Concomitant]
  11. OMEPRAZOLE [Concomitant]

REACTIONS (1)
  - PNEUMONIA [None]
